FAERS Safety Report 15692729 (Version 2)
Quarter: 2018Q4

REPORT INFORMATION
  Report Type: Report from Study
  Country: None (occurrence: US)
  Receive Date: 20181206
  Receipt Date: 20181216
  Transmission Date: 20190205
  Serious: Yes (Hospitalization)
  Sender: FDA-Public Use
  Company Number: US-ABBVIE-18K-163-2562099-00

PATIENT
  Age: 63 Year
  Sex: Female
  Weight: 66.28 kg

DRUGS (1)
  1. HUMIRA [Suspect]
     Active Substance: ADALIMUMAB
     Indication: CROHN^S DISEASE
     Route: 058
     Dates: start: 20181012

REACTIONS (6)
  - Vomiting [Recovering/Resolving]
  - Injection site bruising [Recovering/Resolving]
  - Infection [Not Recovered/Not Resolved]
  - Hypophagia [Recovering/Resolving]
  - Pancreatic disorder [Recovering/Resolving]
  - Crohn^s disease [Recovering/Resolving]

NARRATIVE: CASE EVENT DATE: 2018
